FAERS Safety Report 12988082 (Version 1)
Quarter: 2016Q4

REPORT INFORMATION
  Report Type: Report from Study
  Country: ES (occurrence: ES)
  Receive Date: 20161130
  Receipt Date: 20161130
  Transmission Date: 20170207
  Serious: Yes (Other)
  Sender: FDA-Public Use
  Company Number: ES-MYLANLABS-2016M1051734

PATIENT

DRUGS (7)
  1. FOLINIC ACID [Suspect]
     Active Substance: LEUCOVORIN
     Indication: ADENOCARCINOMA OF COLON
     Dosage: 200 MG/M2 ON DAY 1 IN A 14-DAY CYCLE
     Route: 065
  2. FOLINIC ACID [Suspect]
     Active Substance: LEUCOVORIN
     Indication: METASTASES TO LIVER
  3. AFLIBERCEPT [Concomitant]
     Active Substance: AFLIBERCEPT
     Indication: METASTASES TO LIVER
     Dosage: 4 MG/KG ON DAY 1 IN A 14-DAY CYCLE
     Route: 065
  4. IRINOTECAN [Suspect]
     Active Substance: IRINOTECAN
     Indication: ADENOCARCINOMA OF COLON
     Dosage: 180 MG/M2 ON DAY 1 IN A 14-DAY CYCLE
     Route: 065
  5. FLUOROURACIL. [Suspect]
     Active Substance: FLUOROURACIL
     Indication: ADENOCARCINOMA OF COLON
     Dosage: 400 MG/M2 ON DAY 1 IN A 14-DAY CYCLE, BOLUS
     Route: 065
  6. FLUOROURACIL. [Suspect]
     Active Substance: FLUOROURACIL
     Indication: METASTASES TO LIVER
     Dosage: 2400 MG/M2 ON DAY 1 IN A 14-DAY CYCLE, CONTINUOUS INFUSION
     Route: 065
  7. IRINOTECAN [Suspect]
     Active Substance: IRINOTECAN
     Indication: METASTASES TO LIVER

REACTIONS (9)
  - Dysphonia [Unknown]
  - Conjunctival disorder [Unknown]
  - Diarrhoea [Unknown]
  - Alopecia [Unknown]
  - Neutropenia [Unknown]
  - Epistaxis [Unknown]
  - Decreased appetite [Unknown]
  - Proteinuria [Unknown]
  - Fatigue [Unknown]
